FAERS Safety Report 21175829 (Version 11)
Quarter: 2024Q4

REPORT INFORMATION
  Report Type: Report from Study
  Country: JP (occurrence: JP)
  Receive Date: 20220805
  Receipt Date: 20241123
  Transmission Date: 20250115
  Serious: Yes (Other)
  Sender: ABBVIE
  Company Number: JP-TAKEDA-2022TJP068249

PATIENT
  Age: 72 Year
  Sex: Male
  Weight: 51.9 kg

DRUGS (29)
  1. LEUPROLIDE ACETATE [Suspect]
     Active Substance: LEUPROLIDE ACETATE
     Indication: Bulbospinal muscular atrophy congenital
     Dosage: FORM STRENGTH: 11.25 MILLIGRAM Q3 MONTHS?FIRST DOSE
     Route: 058
     Dates: start: 20200907
  2. LEUPROLIDE ACETATE [Suspect]
     Active Substance: LEUPROLIDE ACETATE
     Dosage: SECOND DOSE
     Route: 058
     Dates: start: 20201208
  3. LEUPROLIDE ACETATE [Suspect]
     Active Substance: LEUPROLIDE ACETATE
     Dosage: THIRD DOSE
     Route: 058
     Dates: start: 20210311
  4. LEUPROLIDE ACETATE [Suspect]
     Active Substance: LEUPROLIDE ACETATE
     Dosage: FOURTH DOSE
     Route: 058
     Dates: start: 20210603
  5. LEUPROLIDE ACETATE [Suspect]
     Active Substance: LEUPROLIDE ACETATE
     Dosage: FIFTH DOSE
     Route: 058
     Dates: start: 20210826
  6. LEUPROLIDE ACETATE [Suspect]
     Active Substance: LEUPROLIDE ACETATE
     Dosage: SIXTH DOSE
     Route: 058
     Dates: start: 20211118
  7. LEUPROLIDE ACETATE [Suspect]
     Active Substance: LEUPROLIDE ACETATE
     Dosage: SEVENTH DOSE
     Route: 058
     Dates: start: 20220210
  8. LEUPROLIDE ACETATE [Suspect]
     Active Substance: LEUPROLIDE ACETATE
     Dosage: EIGHTH DOSE
     Route: 058
     Dates: start: 20220512
  9. LEUPROLIDE ACETATE [Suspect]
     Active Substance: LEUPROLIDE ACETATE
     Dosage: NINTH DOSE
     Route: 058
     Dates: start: 20220804
  10. LEUPROLIDE ACETATE [Suspect]
     Active Substance: LEUPROLIDE ACETATE
     Dosage: 10TH DOSE
     Route: 058
     Dates: start: 20221027
  11. LEUPROLIDE ACETATE [Suspect]
     Active Substance: LEUPROLIDE ACETATE
     Dosage: 11TH DOSE
     Route: 058
     Dates: start: 20230119
  12. LEUPROLIDE ACETATE [Suspect]
     Active Substance: LEUPROLIDE ACETATE
     Dosage: 12TH DOSE
     Route: 058
     Dates: start: 20230413
  13. LEUPROLIDE ACETATE [Suspect]
     Active Substance: LEUPROLIDE ACETATE
     Dosage: 13TH DOSE
     Route: 058
     Dates: start: 20230713
  14. LEUPROLIDE ACETATE [Suspect]
     Active Substance: LEUPROLIDE ACETATE
     Dosage: 14TH DOSE
     Route: 058
     Dates: start: 20231012
  15. LEUPROLIDE ACETATE [Suspect]
     Active Substance: LEUPROLIDE ACETATE
     Dosage: 15TH DOSE
     Route: 058
     Dates: start: 20240111
  16. LEUPROLIDE ACETATE [Suspect]
     Active Substance: LEUPROLIDE ACETATE
     Dosage: 16TH DOSE
     Route: 058
     Dates: start: 20240411
  17. LEUPROLIDE ACETATE [Suspect]
     Active Substance: LEUPROLIDE ACETATE
     Dosage: 17TH DOSE
     Route: 058
     Dates: start: 20240711
  18. LEUPROLIDE ACETATE [Suspect]
     Active Substance: LEUPROLIDE ACETATE
     Dosage: 18TH DOSE
     Route: 058
     Dates: start: 20240711
  19. AROTINOLOL HYDROCHLORIDE [Concomitant]
     Active Substance: AROTINOLOL HYDROCHLORIDE
     Indication: Bulbospinal muscular atrophy congenital
     Dosage: FORM STRENGTH: 5 MILLIGRAM
     Route: 065
  20. AROTINOLOL HYDROCHLORIDE [Concomitant]
     Active Substance: AROTINOLOL HYDROCHLORIDE
     Indication: Bulbospinal muscular atrophy congenital
     Dosage: FORM STRENGTH:10 MILLIGRAM
  21. LANSOPRAZOLE [Concomitant]
     Active Substance: LANSOPRAZOLE
     Indication: Gastric ulcer
     Dosage: FORM STRENGTH: 15 MILLIGRAM
     Route: 065
  22. MEXITIL [Concomitant]
     Active Substance: MEXILETINE HYDROCHLORIDE
     Indication: Product used for unknown indication
     Dosage: FORM STRENGTH: 200 MILLIGRAM
     Route: 065
     Dates: start: 20201126
  23. BISOPROLOL FUMARATE [Concomitant]
     Active Substance: BISOPROLOL FUMARATE
     Indication: Ventricular extrasystoles
     Dosage: FORM STRENGTH: 0.625 MILLIGRAM
     Route: 065
  24. BISOPROLOL FUMARATE [Concomitant]
     Active Substance: BISOPROLOL FUMARATE
     Indication: Ventricular extrasystoles
     Dosage: FORM STRENGTH: 0.125 MILLIGRAM
     Route: 065
     Dates: end: 20240111
  25. MAGNESIUM OXIDE [Concomitant]
     Active Substance: MAGNESIUM OXIDE
     Indication: Constipation
     Dosage: FORM STRENGTH:1320 MILLIGRAM
     Route: 065
     Dates: start: 20201126
  26. MAGNESIUM OXIDE [Concomitant]
     Active Substance: MAGNESIUM OXIDE
     Indication: Constipation
     Dosage: FORM STRENGTH: 330 MILLIGRAM
     Route: 065
     Dates: start: 20210218
  27. MAGNESIUM OXIDE [Concomitant]
     Active Substance: MAGNESIUM OXIDE
     Indication: Constipation
     Dosage: FORM STRENGTH: 1320 MILLIGRAM
     Route: 065
  28. MEXILETINE HYDROCHLORIDE [Concomitant]
     Active Substance: MEXILETINE HYDROCHLORIDE
     Indication: Tachyarrhythmia
     Dosage: FORM STRENGTH: 200 MILLIGRAM
     Route: 048
  29. LINAGLIPTIN [Concomitant]
     Active Substance: LINAGLIPTIN
     Indication: Product used for unknown indication
     Dosage: FORM STRENGTH: 5 MILLIGRAM
     Route: 065

REACTIONS (4)
  - Type 2 diabetes mellitus [Recovering/Resolving]
  - Laboratory test abnormal [Not Recovered/Not Resolved]
  - Aspartate aminotransferase increased [Not Recovered/Not Resolved]
  - Alanine aminotransferase increased [Not Recovered/Not Resolved]

NARRATIVE: CASE EVENT DATE: 20201217
